FAERS Safety Report 4315799-2 (Version None)
Quarter: 2004Q1

REPORT INFORMATION
  Report Type: 
  Country: None (occurrence: None)
  Receive Date: 20040310
  Receipt Date: 20040227
  Transmission Date: 20041129
  Serious: Yes (Other)
  Sender: FDA-Public Use
  Company Number: US-JNJFOC-20031100648

PATIENT
  Age: 16 Year
  Sex: Female
  Weight: 110 kg

DRUGS (1)
  1. ORTHO EVRA [Suspect]
     Indication: CONTRACEPTION
     Dosage: 1 DOSE(S), 3 IN 4 WEEK, TRANSDERMAL
     Route: 062
     Dates: start: 20031016, end: 20031029

REACTIONS (4)
  - DYSPNOEA [None]
  - HYPERSENSITIVITY [None]
  - MENORRHAGIA [None]
  - URTICARIA GENERALISED [None]
